FAERS Safety Report 24958442 (Version 1)
Quarter: 2025Q1

REPORT INFORMATION
  Report Type: Spontaneous
  Country: CN (occurrence: CN)
  Receive Date: 20250212
  Receipt Date: 20250212
  Transmission Date: 20250408
  Serious: Yes (Hospitalization, Other)
  Sender: RANBAXY
  Company Number: CN-SUN PHARMACEUTICAL INDUSTRIES LTD-2025R1-488728

PATIENT
  Age: 39 Year
  Sex: Male

DRUGS (2)
  1. BACLOFEN [Interacting]
     Active Substance: BACLOFEN
     Indication: Hiccups
     Route: 065
  2. CHLORPROMAZINE [Interacting]
     Active Substance: CHLORPROMAZINE
     Indication: Antipsychotic therapy
     Route: 065

REACTIONS (3)
  - Overdose [Unknown]
  - Coma [Unknown]
  - Drug interaction [Unknown]
